FAERS Safety Report 5235489-1 (Version None)
Quarter: 2007Q1

REPORT INFORMATION
  Report Type: 
  Country: None (occurrence: None)
  Receive Date: 20070208
  Receipt Date: 20070208
  Transmission Date: 20070707
  Serious: Yes (Other)
  Sender: FDA-Public Use
  Company Number: None

PATIENT
  Age: 81 Year
  Sex: Female

DRUGS (1)
  1. MEPERIDINE HCL [Suspect]
     Indication: PAIN
     Dosage: 50 MG   X 1    IV
     Route: 042
     Dates: start: 20060803, end: 20060803

REACTIONS (2)
  - ERYTHEMA [None]
  - PRURITUS [None]
